FAERS Safety Report 12389695 (Version 2)
Quarter: 2016Q2

REPORT INFORMATION
  Report Type: Report from Study
  Country: US (occurrence: US)
  Receive Date: 20160520
  Receipt Date: 20160609
  Transmission Date: 20160815
  Serious: Yes (Hospitalization, Other)
  Sender: FDA-Public Use
  Company Number: US-AMGEN-USASL2016063140

PATIENT
  Age: 53 Year
  Sex: Male
  Weight: 77.55 kg

DRUGS (1)
  1. NPLATE [Suspect]
     Active Substance: ROMIPLOSTIM
     Indication: PLATELET COUNT DECREASED
     Dosage: 800 MCG, UNK
     Route: 058

REACTIONS (6)
  - Bone marrow failure [Unknown]
  - Sepsis [Unknown]
  - Visual impairment [Unknown]
  - Metastases to bone [Unknown]
  - Febrile neutropenia [Unknown]
  - Stent placement [Unknown]
